FAERS Safety Report 25906525 (Version 1)
Quarter: 2025Q4

REPORT INFORMATION
  Report Type: Spontaneous
  Country: CN (occurrence: CN)
  Receive Date: 20251010
  Receipt Date: 20251010
  Transmission Date: 20260118
  Serious: Yes (Death, Hospitalization, Other)
  Sender: BRACCO
  Company Number: CN-BRACCO-2025CN06678

PATIENT
  Age: 76 Year
  Sex: Male

DRUGS (1)
  1. GADOBENATE DIMEGLUMINE [Suspect]
     Active Substance: GADOBENATE DIMEGLUMINE
     Dosage: 240 MG; USAGE-TIMES: 1; USAGE-DAYS: 21 DAYS
     Route: 041
     Dates: start: 20250401, end: 20250608

REACTIONS (5)
  - Pancytopenia [Fatal]
  - Multiple organ dysfunction syndrome [Fatal]
  - Fatigue [Unknown]
  - Pyrexia [Unknown]
  - Poor quality sleep [Unknown]

NARRATIVE: CASE EVENT DATE: 20250705
